FAERS Safety Report 15491679 (Version 1)
Quarter: 2018Q4

REPORT INFORMATION
  Report Type: Spontaneous
  Country: FR (occurrence: FR)
  Receive Date: 20181012
  Receipt Date: 20181012
  Transmission Date: 20190205
  Serious: Yes (Other)
  Sender: FDA-Public Use
  Company Number: FR-AUROBINDO-AUR-APL-2018-049822

PATIENT
  Age: 92 Year
  Sex: Female
  Weight: 72 kg

DRUGS (4)
  1. LEVOFLOXACIN. [Suspect]
     Active Substance: LEVOFLOXACIN
     Indication: INFECTION
     Dosage: 750 MILLIGRAM, DAILY
     Route: 048
     Dates: start: 20180710
  2. MIRTAZAPINE. [Concomitant]
     Active Substance: MIRTAZAPINE
     Indication: DEPRESSION
     Dosage: 30 MILLIGRAM, DAILY
     Route: 048
     Dates: end: 20180904
  3. MIRTAZAPINE. [Suspect]
     Active Substance: MIRTAZAPINE
     Indication: DEPRESSION
     Dosage: 45 MILLIGRAM, DAILY
     Route: 048
     Dates: start: 20180905
  4. RIFADINE                           /00146901/ [Suspect]
     Active Substance: RIFAMPIN
     Indication: INFECTION
     Dosage: 900 MILLIGRAM, DAILY
     Route: 048
     Dates: start: 20180710

REACTIONS (1)
  - Leukopenia [Not Recovered/Not Resolved]

NARRATIVE: CASE EVENT DATE: 20180829
